FAERS Safety Report 23722858 (Version 1)
Quarter: 2024Q2

REPORT INFORMATION
  Report Type: Other
  Country: US (occurrence: US)
  Receive Date: 20240409
  Receipt Date: 20240409
  Transmission Date: 20240716
  Serious: Yes (Hospitalization, Other)
  Sender: FDA-Public Use
  Company Number: US-MLMSERVICE-20240320-4897769-1

PATIENT
  Age: 45 Year
  Sex: Male

DRUGS (7)
  1. PROPOFOL [Concomitant]
     Active Substance: PROPOFOL
     Indication: Induction of anaesthesia
  2. FENTANYL [Concomitant]
     Active Substance: FENTANYL\FENTANYL CITRATE
     Indication: Induction of anaesthesia
  3. LIDOCAINE [Concomitant]
     Active Substance: LIDOCAINE
     Indication: Induction of anaesthesia
  4. CHLORHEXIDINE [Suspect]
     Active Substance: CHLORHEXIDINE\CHLORHEXIDINE GLUCONATE
     Route: 061
  5. CHLORHEXIDINE [Suspect]
     Active Substance: CHLORHEXIDINE\CHLORHEXIDINE GLUCONATE
     Route: 040
  6. MIDAZOLAM [Concomitant]
     Active Substance: MIDAZOLAM
     Indication: Induction of anaesthesia
  7. ROCURONIUM [Concomitant]
     Active Substance: ROCURONIUM BROMIDE
     Indication: Induction of anaesthesia

REACTIONS (6)
  - Accidental exposure to product [Unknown]
  - Cardiac arrest [Unknown]
  - Product label issue [Unknown]
  - Anaphylactic reaction [Unknown]
  - Pruritus [Unknown]
  - Erythema [Unknown]
